FAERS Safety Report 24112175 (Version 1)
Quarter: 2024Q3

REPORT INFORMATION
  Report Type: Spontaneous
  Country: US (occurrence: US)
  Receive Date: 20240719
  Receipt Date: 20240719
  Transmission Date: 20241017
  Serious: Yes (Disabling, Other)
  Sender: PFIZER
  Company Number: US-PFIZER INC-202400212630

PATIENT
  Age: 19 Year
  Sex: Female
  Weight: 47.63 kg

DRUGS (1)
  1. DEPO-PROVERA [Suspect]
     Active Substance: MEDROXYPROGESTERONE ACETATE
     Indication: Contraception
     Dosage: 104MG/.65ML EVERY 12 TO 13 WEEKS SUBCUTANEOUSLY
     Route: 058
     Dates: start: 20240701

REACTIONS (15)
  - Dyspnoea [Not Recovered/Not Resolved]
  - Urticaria [Recovered/Resolved]
  - Gait disturbance [Not Recovered/Not Resolved]
  - Injection site pain [Not Recovered/Not Resolved]
  - Arthralgia [Not Recovered/Not Resolved]
  - Pain [Not Recovered/Not Resolved]
  - Nausea [Not Recovered/Not Resolved]
  - Retching [Not Recovered/Not Resolved]
  - Dizziness [Not Recovered/Not Resolved]
  - Peripheral swelling [Recovering/Resolving]
  - Palpitations [Not Recovered/Not Resolved]
  - Incontinence [Unknown]
  - Injection site swelling [Recovering/Resolving]
  - Injection site erythema [Unknown]
  - Hypersensitivity [Unknown]

NARRATIVE: CASE EVENT DATE: 20240701
